FAERS Safety Report 17745042 (Version 1)
Quarter: 2020Q2

REPORT INFORMATION
  Report Type: Spontaneous
  Country: US (occurrence: US)
  Receive Date: 20200501
  Receipt Date: 20200501
  Transmission Date: 20200714
  Serious: No
  Sender: FDA-Public Use
  Company Number: None

PATIENT
  Age: 25 Year
  Sex: Female
  Weight: 43.2 kg

DRUGS (2)
  1. BIOTIN [Suspect]
     Active Substance: BIOTIN
     Indication: HAIR GROWTH ABNORMAL
     Dosage: ?          QUANTITY:1 INJECTION(S);?
     Route: 030
  2. BIOTIN GUMMIES AND COLLAGEN [Concomitant]

REACTIONS (7)
  - Pharyngeal hypoaesthesia [None]
  - Injection site pain [None]
  - Alopecia [None]
  - Depression [None]
  - Sleep disorder [None]
  - Eating disorder [None]
  - Anxiety [None]

NARRATIVE: CASE EVENT DATE: 20200423
